FAERS Safety Report 9543625 (Version 1)
Quarter: 2013Q2

REPORT INFORMATION
  Report Type: Spontaneous
  Country: US (occurrence: None)
  Receive Date: 20130524
  Receipt Date: 20130524
  Transmission Date: 20140414
  Serious: Yes (Hospitalization)
  Sender: FDA-Public Use
  Company Number: PHEH2012US025265

PATIENT
  Age: 54 Year
  Sex: Female

DRUGS (1)
  1. GILENYA [Suspect]
     Route: 048
     Dates: start: 20101221, end: 20130115

REACTIONS (6)
  - Localised infection [None]
  - Influenza [None]
  - Respiratory tract infection [None]
  - Liver function test abnormal [None]
  - Erythema [None]
  - Malaise [None]
